FAERS Safety Report 8877316 (Version 1)
Quarter: 2012Q4

REPORT INFORMATION
  Report Type: 
  Country: US (occurrence: US)
  Receive Date: 20121023
  Receipt Date: 20121023
  Transmission Date: 20130627
  Serious: No
  Sender: FDA-Public Use
  Company Number: US-AMGEN-USASP2012059174

PATIENT
  Age: 56 Year
  Sex: Male
  Weight: 157.82 kg

DRUGS (12)
  1. ENBREL [Suspect]
     Indication: PRODUCT USED FOR UNKNOWN INDICATION
     Dosage: 50 mg/ml, qwk
     Route: 058
  2. CLONIDIN [Concomitant]
     Dosage: 0.1 mg, UNK
  3. ATENOLOL [Concomitant]
     Dosage: 25 mg, UNK
  4. ALLOPURINOL [Concomitant]
     Dosage: 100 mg, UNK
  5. DICLOFENAC [Concomitant]
     Dosage: 25 mg, UNK
  6. LISINOPRIL [Concomitant]
     Dosage: 2.5 mg, UNK
  7. PRAVASTATIN [Concomitant]
     Dosage: 10 mg, UNK
  8. LORTAB                             /00607101/ [Concomitant]
     Dosage: 5-500 MG
  9. AMBIEN [Concomitant]
     Dosage: 5 mg, UNK
  10. DILTIA XT [Concomitant]
     Dosage: 120 mg/24
  11. METFORMIN [Concomitant]
     Dosage: 500 mg, UNK
  12. VITAMIN D /00107901/ [Concomitant]
     Dosage: 2000 UNIT

REACTIONS (6)
  - Hypertension [Recovering/Resolving]
  - Abdominal discomfort [Unknown]
  - Chills [Recovering/Resolving]
  - Diarrhoea [Unknown]
  - Myalgia [Recovering/Resolving]
  - Pyrexia [Recovering/Resolving]
